FAERS Safety Report 11045441 (Version 1)
Quarter: 2015Q2

REPORT INFORMATION
  Report Type: Spontaneous
  Country: FR (occurrence: FR)
  Receive Date: 20150417
  Receipt Date: 20150417
  Transmission Date: 20150821
  Serious: Yes (Life-Threatening, Other)
  Sender: FDA-Public Use
  Company Number: FR-ELI_LILLY_AND_COMPANY-FR201504005300

PATIENT
  Age: 54 Year
  Sex: Male
  Weight: 74 kg

DRUGS (2)
  1. UMULINE [Suspect]
     Active Substance: INSULIN HUMAN
     Indication: PRODUCT USED FOR UNKNOWN INDICATION
     Dosage: UNK
     Route: 034
     Dates: start: 20150220, end: 20150220
  2. UROKINASE [Suspect]
     Active Substance: UROKINASE
     Indication: PLEURISY
     Route: 034

REACTIONS (4)
  - Hypoglycaemic coma [Recovered/Resolved]
  - Hyponatraemia [Recovered/Resolved]
  - Hyperinsulinaemia [Recovered/Resolved]
  - Wrong drug administered [Unknown]

NARRATIVE: CASE EVENT DATE: 20150220
